FAERS Safety Report 5367004-6 (Version None)
Quarter: 2007Q2

REPORT INFORMATION
  Report Type: 
  Country: None (occurrence: None)
  Receive Date: 20070619
  Receipt Date: 20070619
  Transmission Date: 20071010
  Serious: Yes (Hospitalization)
  Sender: FDA-Public Use
  Company Number: None

PATIENT
  Age: 69 Year
  Sex: Male
  Weight: 75.7507 kg

DRUGS (4)
  1. METOPROLOL XL 100 MG QDAY [Suspect]
     Indication: CARDIAC FAILURE CONGESTIVE
     Dosage: DOSE INCREASED FROM 75MG ON 3/15
  2. METOPROLOL XL 100 MG QDAY [Suspect]
     Indication: CORONARY ARTERY DISEASE
     Dosage: DOSE INCREASED FROM 75MG ON 3/15
  3. METOPROLOL XL 100 MG QDAY [Suspect]
     Indication: HYPERTENSION
     Dosage: DOSE INCREASED FROM 75MG ON 3/15
  4. LISINOPRIL [Suspect]
     Indication: HYPERTENSION

REACTIONS (1)
  - ORTHOSTATIC HYPOTENSION [None]
